FAERS Safety Report 12048166 (Version 1)
Quarter: 2016Q1

REPORT INFORMATION
  Report Type: Other
  Country: GB (occurrence: GB)
  Receive Date: 20160209
  Receipt Date: 20160209
  Transmission Date: 20160526
  Serious: No
  Sender: FDA-Public Use
  Company Number: GB-LUPIN PHARMACEUTICALS INC.-2015-03995

PATIENT
  Age: 53 Year
  Sex: Male

DRUGS (3)
  1. RISPERIDONE. [Concomitant]
     Active Substance: RISPERIDONE
     Indication: DEMENTIA ALZHEIMER^S TYPE
     Dosage: 0.25 MG
     Route: 065
  2. DONEPEZIL. [Suspect]
     Active Substance: DONEPEZIL
     Indication: DEMENTIA ALZHEIMER^S TYPE
     Route: 065
  3. RISPERIDONE. [Concomitant]
     Active Substance: RISPERIDONE
     Dosage: 0.5 MG
     Route: 065

REACTIONS (1)
  - Diarrhoea [Unknown]
